FAERS Safety Report 12325011 (Version 1)
Quarter: 2016Q2

REPORT INFORMATION
  Report Type: Spontaneous
  Country: DE (occurrence: DE)
  Receive Date: 20160502
  Receipt Date: 20160502
  Transmission Date: 20160815
  Serious: Yes (Other)
  Sender: FDA-Public Use
  Company Number: DE-NOVOPROD-484298

PATIENT
  Age: 70 Year
  Sex: Male
  Weight: 110 kg

DRUGS (5)
  1. PROCORALAN [Concomitant]
     Active Substance: IVABRADINE
     Indication: CARDIAC FAILURE
     Dosage: 7.5 MG IN THE MORNING, 5 MG IN THE EVENING
  2. VICTOZA [Suspect]
     Active Substance: LIRAGLUTIDE
     Indication: TYPE 2 DIABETES MELLITUS
     Dosage: 1.2 MG, QD
     Route: 065
  3. VALSARTAN. [Concomitant]
     Active Substance: VALSARTAN
     Indication: HYPERTENSION
     Dosage: 160 MG (1/2 IN THE MORNING, 1/2 IN THE EVENING)
  4. METFORMIN RATIOPHARM [Concomitant]
     Indication: DIABETES MELLITUS
     Dosage: 1000 MG, BID
  5. ATORVASTATIN BASICS [Concomitant]
     Dosage: 1/2 IN THE EVENING

REACTIONS (1)
  - Thyroid mass [Unknown]
